FAERS Safety Report 22520110 (Version 1)
Quarter: 2023Q2

REPORT INFORMATION
  Report Type: Spontaneous
  Country: US (occurrence: None)
  Receive Date: 20230602
  Receipt Date: 20230602
  Transmission Date: 20230722
  Serious: Yes (Death)
  Sender: FDA-Public Use
  Company Number: None

PATIENT
  Age: 75 Year
  Sex: Female

DRUGS (6)
  1. CAPECITABINE [Suspect]
     Active Substance: CAPECITABINE
     Indication: Breast cancer female
     Dosage: OTHER QUANTITY : 2T;?FREQUENCY : TWICE A DAY;?
     Route: 048
  2. ATORVASTATIN [Concomitant]
     Active Substance: ATORVASTATIN
  3. ELIQUIS [Concomitant]
     Active Substance: APIXABAN
  4. LIDOCAINE [Concomitant]
     Active Substance: LIDOCAINE
  5. METOPROLOL [Concomitant]
     Active Substance: METOPROLOL
  6. SPIRONOLACTONE [Suspect]
     Active Substance: SPIRONOLACTONE

REACTIONS (1)
  - Death [None]

NARRATIVE: CASE EVENT DATE: 20230531
